FAERS Safety Report 7721190-9 (Version None)
Quarter: 2011Q3

REPORT INFORMATION
  Report Type: 
  Country: None (occurrence: None)
  Receive Date: 20110830
  Receipt Date: 20110830
  Transmission Date: 20111222
  Serious: No
  Sender: FDA-Public Use
  Company Number: None

PATIENT
  Age: 69 Year
  Sex: Female
  Weight: 54.1 kg

DRUGS (1)
  1. WELCHOL [Suspect]
     Indication: BLOOD CHOLESTEROL INCREASED
     Dosage: 6 PILLS DAILY 3 IN AM/3 IN PM ORAL - 047
     Route: 048
     Dates: start: 20110707, end: 20110710

REACTIONS (4)
  - BONE PAIN [None]
  - SUDDEN ONSET OF SLEEP [None]
  - MYALGIA [None]
  - MUSCLE DISORDER [None]
